FAERS Safety Report 5876766-0 (Version None)
Quarter: 2008Q3

REPORT INFORMATION
  Report Type: 
  Country: None (occurrence: None)
  Receive Date: 20080909
  Receipt Date: 20080909
  Transmission Date: 20090109
  Serious: No
  Sender: FDA-Public Use
  Company Number: None

PATIENT
  Age: 23 Year
  Sex: Female
  Weight: 68.0396 kg

DRUGS (2)
  1. CYMBALTA [Suspect]
     Indication: ANXIETY
     Dosage: 60MG DAILY
     Dates: start: 20070401, end: 20080601
  2. CYMBALTA [Suspect]
     Indication: DEPRESSION
     Dosage: 60MG DAILY
     Dates: start: 20070401, end: 20080601

REACTIONS (12)
  - ACTIVITIES OF DAILY LIVING IMPAIRED [None]
  - DISCOMFORT [None]
  - EDUCATIONAL PROBLEM [None]
  - EMOTIONAL DISORDER [None]
  - FATIGUE [None]
  - FEELING ABNORMAL [None]
  - HEADACHE [None]
  - IMPAIRED DRIVING ABILITY [None]
  - IMPAIRED WORK ABILITY [None]
  - NAUSEA [None]
  - PARAESTHESIA [None]
  - VERTIGO [None]
